FAERS Safety Report 5779574-4 (Version None)
Quarter: 2008Q2

REPORT INFORMATION
  Report Type: 
  Country: None (occurrence: None)
  Receive Date: 20080619
  Receipt Date: 20080102
  Transmission Date: 20081010
  Serious: No
  Sender: FDA-Public Use
  Company Number: US-ASTRAZENECA-2007UW24754

PATIENT
  Age: 52 Year
  Sex: Male

DRUGS (5)
  1. ATACAND HCT [Suspect]
     Dosage: 32/12.5 MG
     Route: 048
     Dates: start: 20050101
  2. ALLEGRA [Concomitant]
  3. NEXIUM [Concomitant]
     Route: 048
  4. POTASSIUM CHLORIDE [Concomitant]
  5. KLOR-CON [Concomitant]

REACTIONS (2)
  - DRUG INEFFECTIVE [None]
  - HYPERTENSION [None]
